FAERS Safety Report 13155301 (Version 1)
Quarter: 2017Q1

REPORT INFORMATION
  Report Type: Spontaneous
  Country: US (occurrence: US)
  Receive Date: 20170126
  Receipt Date: 20170126
  Transmission Date: 20170428
  Serious: No
  Sender: FDA-Public Use
  Company Number: US-PFIZER INC-2017032548

PATIENT

DRUGS (1)
  1. LIPITOR [Suspect]
     Active Substance: ATORVASTATIN CALCIUM
     Dosage: UNK

REACTIONS (6)
  - Confusional state [Unknown]
  - Lethargy [Unknown]
  - Depressed mood [Unknown]
  - Glucose tolerance impaired [Unknown]
  - Weight increased [Unknown]
  - Insomnia [Unknown]
